FAERS Safety Report 9322724 (Version 2)
Quarter: 2013Q2

REPORT INFORMATION
  Report Type: Spontaneous
  Country: FI (occurrence: FI)
  Receive Date: 20130601
  Receipt Date: 20130604
  Transmission Date: 20140414
  Serious: Yes (Other)
  Sender: FDA-Public Use
  Company Number: FI-ROCHE-1230000

PATIENT
  Age: 50 Year
  Sex: Female

DRUGS (2)
  1. HERCEPTIN [Suspect]
     Indication: BREAST CANCER RECURRENT
     Route: 042
  2. FEMAR [Concomitant]
     Indication: BREAST CANCER RECURRENT

REACTIONS (3)
  - Encephalitis viral [Not Recovered/Not Resolved]
  - Myalgia [Unknown]
  - Joint swelling [Unknown]
